FAERS Safety Report 23899111 (Version 1)
Quarter: 2024Q2

REPORT INFORMATION
  Report Type: Other
  Country: JO (occurrence: JO)
  Receive Date: 20240526
  Receipt Date: 20240526
  Transmission Date: 20240716
  Serious: Yes (Hospitalization, Other)
  Sender: FDA-Public Use
  Company Number: JO-DEXPHARM-2024-1331

PATIENT
  Age: 19 Month
  Sex: Male

DRUGS (6)
  1. DEXAMETHASONE [Suspect]
     Active Substance: DEXAMETHASONE
     Dosage: DEXAMETHASONE, VINCRISTINE, PEGASPARGASE, INTRATHECAL METHOTREXATE, AND INTRATHECAL CYTRABINE.
  2. VINCRISTINE [Concomitant]
     Active Substance: VINCRISTINE
  3. PEGASPARGASE [Concomitant]
     Active Substance: PEGASPARGASE
  4. METHOTREXATE [Concomitant]
     Active Substance: METHOTREXATE
  5. cytrabine [Concomitant]
  6. hydrochlo?rothiazide [Concomitant]

REACTIONS (2)
  - Polydipsia [Recovering/Resolving]
  - Polyuria [Recovering/Resolving]
